FAERS Safety Report 22260843 (Version 1)
Quarter: 2023Q2

REPORT INFORMATION
  Report Type: Spontaneous
  Country: DE (occurrence: DE)
  Receive Date: 20230427
  Receipt Date: 20230427
  Transmission Date: 20230722
  Serious: Yes (Hospitalization)
  Sender: FDA-Public Use
  Company Number: DE-002147023-NVSC2023DE084117

PATIENT
  Sex: Male
  Weight: 150 kg

DRUGS (50)
  1. AMIODARONE [Suspect]
     Active Substance: AMIODARONE
     Indication: Atrial fibrillation
     Dosage: UNK
     Route: 065
  2. ENTRESTO [Suspect]
     Active Substance: SACUBITRIL\VALSARTAN
     Indication: Cardiomyopathy
     Dosage: UNK
     Route: 065
  3. ENTRESTO [Suspect]
     Active Substance: SACUBITRIL\VALSARTAN
     Indication: NYHA classification
  4. ENTRESTO [Suspect]
     Active Substance: SACUBITRIL\VALSARTAN
     Indication: Myocarditis
  5. SPIRONOLACTONE [Suspect]
     Active Substance: SPIRONOLACTONE
     Indication: Cardiac failure
     Dosage: UNK
     Route: 065
  6. TORSEMIDE [Concomitant]
     Active Substance: TORSEMIDE
     Indication: Product used for unknown indication
     Dosage: ONE DOSE IN THE MORNING, HALF AT NOON(1-1/2-0)
     Route: 065
     Dates: start: 201411
  7. TORSEMIDE [Concomitant]
     Active Substance: TORSEMIDE
     Dosage: UNK, QD,1X 5 MG
     Route: 065
     Dates: start: 201411
  8. RAMIPRIL [Concomitant]
     Active Substance: RAMIPRIL
     Indication: Product used for unknown indication
     Dosage: UNK, QD,1X 2.5 MG, (1-0-0)
     Route: 065
  9. VALSARTAN [Concomitant]
     Active Substance: VALSARTAN
     Indication: Product used for unknown indication
     Dosage: QD, 320/25 MG,ONCE DAILY IN THE MORNIN (1-0-0)
     Route: 065
  10. NITRENDIPINE [Concomitant]
     Active Substance: NITRENDIPINE
     Indication: Product used for unknown indication
     Dosage: UNK
     Route: 060
     Dates: start: 201910
  11. JELLIPROCT [Concomitant]
     Indication: Product used for unknown indication
     Dosage: UNK
     Route: 065
     Dates: start: 201901
  12. OMEPRAZOLE [Concomitant]
     Active Substance: OMEPRAZOLE
     Indication: Product used for unknown indication
     Dosage: 20 MG, QD, (MORNING)
     Route: 065
  13. AMIODARONE [Concomitant]
     Active Substance: AMIODARONE
     Indication: Product used for unknown indication
     Dosage: UNK
     Route: 065
     Dates: start: 201411
  14. AMIODARONE [Concomitant]
     Active Substance: AMIODARONE
     Indication: Arrhythmia
     Dosage: 200 MG
     Route: 065
     Dates: start: 20210114
  15. AMIODARONE [Concomitant]
     Active Substance: AMIODARONE
     Indication: Tachyarrhythmia
  16. NASIC CUR [Concomitant]
     Indication: Product used for unknown indication
     Dosage: UNK, PRN, NOSE SPRAY
     Route: 065
     Dates: start: 201911
  17. BISOPROLOL [Concomitant]
     Active Substance: BISOPROLOL
     Indication: Product used for unknown indication
     Dosage: 5,ONCE IN THE MORNING, IN THE EVENING (1-0-1)
     Route: 065
     Dates: start: 201504
  18. ZOPICLONE [Concomitant]
     Active Substance: ZOPICLONE
     Indication: Product used for unknown indication
     Dosage: UNK, PRN, 1X 7.5 MG
     Route: 048
  19. TORSEMIDE [Concomitant]
     Active Substance: TORSEMIDE
     Indication: Product used for unknown indication
     Dosage: 1X 10 MG,IN THE MORNING,AT NOON(1-1-0)
     Route: 065
  20. TORSEMIDE [Concomitant]
     Active Substance: TORSEMIDE
     Dosage: UNK, QD, 1X 40 MG
     Route: 065
  21. VERAPAMIL HYDROCHLORIDE [Concomitant]
     Active Substance: VERAPAMIL HYDROCHLORIDE
     Indication: Product used for unknown indication
     Dosage: UNK, TID, 1X 120 MG
     Route: 065
     Dates: start: 201410
  22. HYDROCHLOROTHIAZIDE [Concomitant]
     Active Substance: HYDROCHLOROTHIAZIDE
     Indication: Product used for unknown indication
     Dosage: 1X 12.5 MG,IN THE MORNING, IN THE EVENING(1-0-1)
     Route: 065
     Dates: start: 201410
  23. HYDROCHLOROTHIAZIDE [Concomitant]
     Active Substance: HYDROCHLOROTHIAZIDE
     Dosage: UNK, QD,1X 12.5 MG,
     Route: 065
     Dates: start: 201410
  24. Novalgin [Concomitant]
     Indication: Product used for unknown indication
     Dosage: UNK, (1X 500 MG), 4X DAILY IF NEEDED
     Route: 065
  25. DEXAMETHASONE [Concomitant]
     Active Substance: DEXAMETHASONE
     Indication: Product used for unknown indication
     Dosage: 4 MG
     Route: 065
     Dates: start: 201507
  26. CANDESARTAN ABZ [Concomitant]
     Indication: Hypertension
     Dosage: UNK, QD, 1X 32 MG, IN THE MORNING (1-0-0)
     Route: 065
  27. BISOPROLOL FUMARATE [Concomitant]
     Active Substance: BISOPROLOL FUMARATE
     Indication: Product used for unknown indication
     Dosage: 1X 5 MG, IN THE MORNING, IN THE EVENING (1-0-1)
     Route: 048
  28. PIROXICAM [Concomitant]
     Active Substance: PIROXICAM
     Indication: Product used for unknown indication
     Dosage: 20 MG
     Route: 065
     Dates: start: 201507
  29. ALLOPURINOL [Concomitant]
     Active Substance: ALLOPURINOL
     Indication: Product used for unknown indication
     Dosage: 100, ONCE DAILY IN THE EVENING (0-0-1)
     Route: 065
     Dates: start: 2019
  30. Bepanthen [Concomitant]
     Indication: Product used for unknown indication
     Dosage: (WOUND AND HEALING OINTMENT)
     Route: 065
  31. PANTOPRAZOLE SODIUM [Concomitant]
     Active Substance: PANTOPRAZOLE SODIUM
     Indication: Product used for unknown indication
     Dosage: 40 MG, QD
     Route: 065
  32. DIMETHINDENE [Concomitant]
     Active Substance: DIMETHINDENE
     Indication: Pruritus
     Dosage: UNK, PRN
     Route: 065
     Dates: start: 201912
  33. Novodigal [Concomitant]
     Indication: Product used for unknown indication
     Dosage: UNK, QD,0.1
     Route: 065
     Dates: start: 201410
  34. BISOPROLOL [Concomitant]
     Active Substance: BISOPROLOL
     Indication: Product used for unknown indication
     Dosage: 1X 2.5 MG, IN THE MORNING,EVENING (1-0-1)
     Route: 048
  35. BISOPROLOL [Concomitant]
     Active Substance: BISOPROLOL
     Dosage: 7.5, ONCE DAILY IN THE MORNING
     Route: 065
  36. BISOPROLOL [Concomitant]
     Active Substance: BISOPROLOL
     Dosage: 1X 5 MG,1 DOSAGE MORNING, HALF EVENING (1-0-1/2)
     Route: 065
  37. BISOPROLOL [Concomitant]
     Active Substance: BISOPROLOL
     Dosage: UNK, 1X 2.5 MG, 1X DAILY (EVENING)
     Route: 065
  38. BISOPROLOL [Concomitant]
     Active Substance: BISOPROLOL
     Dosage: 5 MG, QD, (MORNING)
     Route: 065
  39. BISOPROLOL [Concomitant]
     Active Substance: BISOPROLOL
     Dosage: 1X 5 MG, 2X DAILY (MORNING AND EVENING)
     Route: 048
  40. BISOPROLOL [Concomitant]
     Active Substance: BISOPROLOL
     Dosage: 1X 2.5 MG,1.5  IN THE MORNING,EVENING (1.5-0-1)
     Route: 065
  41. BISOPROLOL [Concomitant]
     Active Substance: BISOPROLOL
     Dosage: UNK, 1.5X 2.5 MG, 1X DAILY (MORNING)
     Route: 065
  42. BISOPROLOL [Concomitant]
     Active Substance: BISOPROLOL
     Dosage: UNK, TWICE IN THE MORNING, EVENING (2-0-2)
     Route: 065
  43. RAMIPRIL [Concomitant]
     Active Substance: RAMIPRIL
     Indication: Product used for unknown indication
     Dosage: HALF IN THE MORNING,EVENING (0.5-0-0.5)
     Route: 065
     Dates: start: 201410
  44. ALLOPURINOL [Concomitant]
     Active Substance: ALLOPURINOL
     Indication: Product used for unknown indication
     Dosage: 300 MG, QD, 1X DAILY (EVENING)
     Route: 065
  45. CANDESARTAN CILEXETIL [Concomitant]
     Active Substance: CANDESARTAN CILEXETIL
     Indication: Hypertension
     Dosage: 1X 16 MG, IN THE MORNING (1-0-0)
     Route: 065
  46. FUROSEMIDE [Concomitant]
     Active Substance: FUROSEMIDE
     Indication: Product used for unknown indication
     Dosage: 1X 40 MG, IN THE MORNING (1-0-0)
     Route: 065
     Dates: start: 201910
  47. FUROSEMIDE [Concomitant]
     Active Substance: FUROSEMIDE
     Dosage: UNK, 20
     Route: 065
  48. FUROSEMIDE [Concomitant]
     Active Substance: FUROSEMIDE
     Dosage: 500 MG
     Route: 065
  49. DIPYRONE [Concomitant]
     Active Substance: DIPYRONE
     Indication: Product used for unknown indication
     Dosage: UNK UNK, QID, 500 MG / 30 GTT
     Route: 065
  50. TORASEMIDE HEXAL [Concomitant]
     Indication: Product used for unknown indication
     Dosage: 10 MG
     Route: 065
     Dates: start: 201412

REACTIONS (9)
  - Tachycardia [Unknown]
  - Malaise [Unknown]
  - Atrial fibrillation [Unknown]
  - Bifascicular block [Unknown]
  - Dizziness [Unknown]
  - White blood cell count increased [Unknown]
  - C-reactive protein increased [Unknown]
  - Staphylococcal infection [Unknown]
  - Product use in unapproved indication [Unknown]

NARRATIVE: CASE EVENT DATE: 20220101
